FAERS Safety Report 24134004 (Version 2)
Quarter: 2024Q3

REPORT INFORMATION
  Report Type: Report from Study
  Country: US (occurrence: US)
  Receive Date: 20240724
  Receipt Date: 20240812
  Transmission Date: 20241017
  Serious: No
  Sender: DR REDDYS
  Company Number: US-E2BLSMVVAL-CLI/USA/24/0010650

PATIENT
  Age: 25 Year
  Sex: Female

DRUGS (1)
  1. ACCUTANE [Suspect]
     Active Substance: ISOTRETINOIN
     Indication: Acne
     Dosage: AVERAGE DAILY DOSE OF 60 MG
     Route: 065
     Dates: start: 20231114

REACTIONS (1)
  - Circumstance or information capable of leading to medication error [Unknown]
